FAERS Safety Report 6428946-3 (Version None)
Quarter: 2009Q4

REPORT INFORMATION
  Report Type: 
  Country: None (occurrence: None)
  Receive Date: 20091104
  Receipt Date: 20091104
  Transmission Date: 20100525
  Serious: Yes (Life-Threatening)
  Sender: FDA-Public Use
  Company Number: None

PATIENT
  Age: 48 Year
  Sex: Female
  Weight: 68.2 kg

DRUGS (2)
  1. ROPIVACAINE [Suspect]
     Indication: NERVE BLOCK
     Dosage: 14 ML X1 INFILTRATED
     Dates: start: 20090713
  2. FENTANYL 2 ML/AMPULE [Suspect]
     Indication: NERVE BLOCK
     Dosage: 1 ML X1 INFILTRATED
     Dates: start: 20090701

REACTIONS (2)
  - CARDIO-RESPIRATORY ARREST [None]
  - CONVULSION [None]
